FAERS Safety Report 5337121-5 (Version None)
Quarter: 2007Q2

REPORT INFORMATION
  Report Type: 
  Country: None (occurrence: None)
  Receive Date: 20070529
  Receipt Date: 20070515
  Transmission Date: 20071010
  Serious: Yes (Hospitalization)
  Sender: FDA-Public Use
  Company Number: US-ROCHE-497719

PATIENT
  Age: 50 Year
  Sex: Female

DRUGS (19)
  1. PEG-INTERFERON ALFA 2A (RO 25-8310) [Suspect]
     Route: 058
     Dates: start: 20050906, end: 20060801
  2. RIBAVIRIN [Suspect]
     Dosage: REPORTED AS GIVEN IN DIVIDED DOSES.
     Route: 048
     Dates: start: 20050906, end: 20060807
  3. SERTRALINE [Concomitant]
     Dates: start: 20000101
  4. TRAZODONE HCL [Concomitant]
     Dates: start: 20060424
  5. ATIVAN [Concomitant]
     Dates: start: 20060826
  6. SYMBYAX [Concomitant]
     Dates: start: 20060525
  7. VITAMIN B-12 [Concomitant]
     Dates: start: 20051027
  8. ESTROVEN [Concomitant]
     Dates: start: 20050501
  9. MULTIVITAMINS E,C,K [Concomitant]
     Dates: start: 19970101
  10. CALCIUM CHLORIDE [Concomitant]
     Dates: start: 19970101
  11. GLUCOSAMINE [Concomitant]
     Dates: start: 20020101
  12. CHONDROITIN [Concomitant]
     Dates: start: 20020101
  13. FISH OIL [Concomitant]
     Dates: start: 20020101
  14. HYDROXYZINE HYDROCHLORIDE [Concomitant]
     Dates: start: 20040501, end: 20061015
  15. IBUPROFEN [Concomitant]
     Dates: start: 20050906, end: 20060505
  16. DIPHENHYDRAMINE HCL [Concomitant]
     Dates: start: 20050909, end: 20051130
  17. PROMETHAZINE [Concomitant]
     Dates: start: 20050922, end: 20061001
  18. LORAZEPAM [Concomitant]
     Dates: start: 20050922, end: 20060809
  19. ESZOPICLONE [Concomitant]
     Dates: start: 20050510, end: 20051009

REACTIONS (3)
  - CYSTOPEXY [None]
  - HYSTERECTOMY [None]
  - RECTOCELE REPAIR [None]
